FAERS Safety Report 21557421 (Version 2)
Quarter: 2025Q1

REPORT INFORMATION
  Report Type: Spontaneous
  Country: JP (occurrence: JP)
  Receive Date: 20221105
  Receipt Date: 20250331
  Transmission Date: 20250409
  Serious: Yes (Other)
  Sender: AUROBINDO
  Company Number: JP-NAPPMUNDI-GBR-2022-0102542

PATIENT
  Age: 75 Year
  Sex: Female

DRUGS (1)
  1. FOLOTYN [Suspect]
     Active Substance: PRALATREXATE
     Indication: Blastic plasmacytoid dendritic cell neoplasia
     Route: 042

REACTIONS (1)
  - Malignant neoplasm progression [Not Recovered/Not Resolved]
